APPROVED DRUG PRODUCT: CALCITRIOL
Active Ingredient: CALCITRIOL
Strength: 1MCG/ML
Dosage Form/Route: SOLUTION;ORAL
Application: A203973 | Product #001 | TE Code: AA
Applicant: ANDA REPOSITORY LLC
Approved: Jul 28, 2023 | RLD: No | RS: No | Type: RX